FAERS Safety Report 17882601 (Version 2)
Quarter: 2020Q2

REPORT INFORMATION
  Report Type: Spontaneous
  Country: US (occurrence: US)
  Receive Date: 20200610
  Receipt Date: 20200617
  Transmission Date: 20200714
  Serious: Yes (Death, Hospitalization)
  Sender: FDA-Public Use
  Company Number: US-VIFOR (INTERNATIONAL) INC.-VIT-2020-06392

PATIENT
  Age: 70 Year
  Sex: Female

DRUGS (1)
  1. VELTASSA [Suspect]
     Active Substance: PATIROMER
     Indication: HYPERKALAEMIA
     Route: 048
     Dates: start: 20200417

REACTIONS (4)
  - Hospitalisation [Unknown]
  - Inappropriate schedule of product administration [Unknown]
  - Death [Fatal]
  - Mechanical ventilation [Unknown]

NARRATIVE: CASE EVENT DATE: 2020
